FAERS Safety Report 8712715 (Version 2)
Quarter: 2012Q4

REPORT INFORMATION
  Report Type: 
  Country: US (occurrence: US)
  Receive Date: 20120808
  Receipt Date: 20120829
  Transmission Date: 20130627
  Serious: Yes (Hospitalization)
  Sender: FDA-Public Use
  Company Number: US-CELGENEUS-163-21880-12052158

PATIENT
  Age: 83 None
  Sex: Male

DRUGS (37)
  1. REVLIMID [Suspect]
     Indication: MULTIPLE MYELOMA
     Dosage: 25 Milligram
     Route: 048
     Dates: start: 20120323
  2. REVLIMID [Suspect]
     Dosage: 25 Milligram
     Route: 048
     Dates: start: 2012
  3. REVLIMID [Suspect]
     Dosage: 15 Milligram
     Route: 048
     Dates: start: 2012, end: 20120716
  4. DUONEB [Concomitant]
     Indication: DRUG USE FOR UNKNOWN INDICATION
     Route: 065
  5. OMEPRAZOLE [Concomitant]
     Indication: GERD
     Dosage: 20 Milligram
     Route: 065
  6. LEXAPRO [Concomitant]
     Indication: DEPRESSION
     Dosage: 20 Milligram
     Route: 065
  7. CARVEDILOL [Concomitant]
     Indication: HYPERTENSION
     Dosage: 50 Milligram
     Route: 065
  8. ACYCLOVIR [Concomitant]
     Indication: PROPHYLAXIS
     Dosage: 800 Milligram
     Route: 065
  9. DIOVAN [Concomitant]
     Indication: DRUG USE FOR UNKNOWN INDICATION
     Route: 065
  10. MORPHINE SULFATE [Concomitant]
     Indication: PAIN
     Dosage: 15 Milligram
     Route: 065
  11. LIDODERM [Concomitant]
     Indication: PAIN
     Route: 062
  12. CIPROFLOXACIN [Concomitant]
     Indication: DRUG USE FOR UNKNOWN INDICATION
     Route: 041
  13. FLAGYL [Concomitant]
     Indication: DRUG USE FOR UNKNOWN INDICATION
     Route: 041
  14. DECADRON [Concomitant]
     Indication: DRUG USE FOR UNKNOWN INDICATION
     Dosage: 20 Milligram
     Route: 065
  15. ASA [Concomitant]
     Indication: SUPPLEMENTATION THERAPY
     Dosage: 81 Milligram
     Route: 065
  16. VELCADE [Concomitant]
     Indication: DRUG USE FOR UNKNOWN INDICATION
     Dosage: 1 milligram/sq. meter
     Route: 065
  17. DEXAMETHASONE [Concomitant]
     Indication: DRUG USE FOR UNKNOWN INDICATION
     Dosage: 20 Milligram
     Route: 065
  18. SIMVASTATIN [Concomitant]
     Indication: DRUG USE FOR UNKNOWN INDICATION
     Route: 065
  19. LORAZEPAM [Concomitant]
     Indication: DRUG USE FOR UNKNOWN INDICATION
     Route: 065
  20. ALLOPURINOL [Concomitant]
     Indication: DRUG USE FOR UNKNOWN INDICATION
     Route: 065
  21. LACTULOSE [Concomitant]
     Indication: CONSTIPATION
     Route: 065
  22. MS CONTIN [Concomitant]
     Indication: PAIN
     Dosage: 15 Milligram
     Route: 065
  23. ZOMETA [Concomitant]
     Indication: DRUG USE FOR UNKNOWN INDICATION
     Route: 065
  24. PLATELETS [Concomitant]
     Indication: TRANSFUSION
     Route: 041
     Dates: start: 201204
  25. VITAMIN D3 [Concomitant]
     Indication: CALCIUM DECREASED
     Dosage: 1200 Milligram
     Route: 065
  26. BISACODYL [Concomitant]
     Indication: CONSTIPATION
     Dosage: 10 Milligram
     Route: 065
  27. PROTONIX [Concomitant]
     Indication: GERD
     Dosage: 40 Milligram
     Route: 065
  28. AMBIEN [Concomitant]
     Indication: SLEEP DISORDER NOS
     Dosage: 10 Milligram
     Route: 065
  29. ZOFRAN [Concomitant]
     Indication: NAUSEA
     Dosage: 8 Milligram
     Route: 065
  30. SENNA S [Concomitant]
     Indication: CONSTIPATION
     Dosage: 2
     Route: 065
  31. ATIVAN [Concomitant]
     Indication: SLEEP DISORDER NOS
     Dosage: .5 Milligram
     Route: 065
  32. IMODIUM AD [Concomitant]
     Indication: DIARRHEA
     Dosage: 1
     Route: 065
  33. TYLENOL [Concomitant]
     Indication: PAIN
     Dosage: 650 Milligram
     Route: 065
  34. KAOPECTATE [Concomitant]
     Indication: SUPPLEMENTATION THERAPY
     Route: 065
  35. LACTINEX [Concomitant]
     Indication: SUPPLEMENTATION THERAPY
     Dosage: 6 Tablet
     Route: 048
  36. COREG [Concomitant]
     Indication: HYPERTENSION
     Dosage: 50 Milligram
     Route: 065
  37. ZOCOR [Concomitant]
     Indication: BLOOD CHOLESTEROL INCREASED
     Dosage: 40 Milligram
     Route: 065

REACTIONS (9)
  - Enterocolitis [Recovered/Resolved]
  - Haematuria [Recovered/Resolved]
  - Gastrointestinal haemorrhage [Unknown]
  - Renal failure [Recovered/Resolved]
  - Thrombocytopenia [Recovered/Resolved]
  - Anaemia [Not Recovered/Not Resolved]
  - Asthenia [Not Recovered/Not Resolved]
  - Diarrhoea [Recovered/Resolved with Sequelae]
  - Pruritus [Unknown]
